FAERS Safety Report 10219499 (Version 1)
Quarter: 2014Q2

REPORT INFORMATION
  Report Type: Spontaneous
  Country: US (occurrence: None)
  Receive Date: 20140604
  Receipt Date: 20140604
  Transmission Date: 20141212
  Serious: Yes (Other)
  Sender: FDA-Public Use
  Company Number: None

PATIENT
  Age: 24 Year
  Sex: Male
  Weight: 60.78 kg

DRUGS (3)
  1. COMPLERA [Suspect]
     Indication: HIV INFECTION
     Dosage: 1 PILL QD ORAL
     Route: 048
  2. BACTRIM [Concomitant]
  3. AZITHROMYCIN [Concomitant]

REACTIONS (3)
  - Drug hypersensitivity [None]
  - Conjunctivitis [None]
  - Neutropenia [None]
